FAERS Safety Report 4986106-7 (Version None)
Quarter: 2006Q2

REPORT INFORMATION
  Report Type: 
  Country: None (occurrence: None)
  Receive Date: 20060428
  Receipt Date: 20060419
  Transmission Date: 20061013
  Serious: Yes (Other)
  Sender: FDA-Public Use
  Company Number: FR-SANOFI-SYNTHELABO-A02200601042

PATIENT
  Age: 70 Year
  Sex: Male

DRUGS (8)
  1. PLAVIX [Suspect]
     Indication: ARTERIOSCLEROSIS
     Route: 048
     Dates: start: 20060201, end: 20060201
  2. ROCEPHIN [Concomitant]
     Indication: BRONCHITIS
     Dosage: UNK
     Route: 065
     Dates: start: 20060201
  3. FLECAINIDE ACETATE [Concomitant]
     Indication: DRUG USE FOR UNKNOWN INDICATION
     Dosage: UNK
     Route: 048
  4. TORENTAL [Concomitant]
     Indication: DRUG USE FOR UNKNOWN INDICATION
     Dosage: UNK
     Route: 050
     Dates: end: 20060101
  5. TAHOR [Concomitant]
     Indication: DRUG USE FOR UNKNOWN INDICATION
     Dosage: UNK
     Route: 048
     Dates: end: 20060101
  6. OXYGEN [Concomitant]
     Indication: RESPIRATORY FAILURE
     Dosage: UNK
     Route: 055
  7. KARDEGIC [Concomitant]
     Indication: THROMBOSIS PROPHYLAXIS
     Dosage: UNK
     Route: 048
     Dates: end: 20060201
  8. TICLID [Concomitant]
     Indication: THROMBOSIS PROPHYLAXIS
     Dosage: UNK
     Route: 054
     Dates: start: 20060301, end: 20060301

REACTIONS (5)
  - AGRANULOCYTOSIS [None]
  - BRONCHITIS [None]
  - EXFOLIATIVE RASH [None]
  - PRURITUS [None]
  - PYREXIA [None]
